FAERS Safety Report 16200533 (Version 1)
Quarter: 2019Q2

REPORT INFORMATION
  Report Type: Spontaneous
  Country: GB (occurrence: GB)
  Receive Date: 20190416
  Receipt Date: 20190416
  Transmission Date: 20190711
  Serious: Yes (Life-Threatening, Other)
  Sender: FDA-Public Use
  Company Number: GB-TEVA-2019-GB-1037952

PATIENT
  Age: 87 Year
  Sex: Female

DRUGS (15)
  1. BECLOMETASONE [Concomitant]
     Active Substance: BECLOMETHASONE DIPROPIONATE
     Dosage: PUFF INTO EACH NOSTRIL
     Route: 045
     Dates: start: 20180810
  2. NAPROXEN. [Concomitant]
     Active Substance: NAPROXEN
     Dates: start: 20180723
  3. CODEINE [Concomitant]
     Active Substance: CODEINE
     Dosage: FOUR TIMES A DAY, MAY BE TAKEN WITH PARACETMOL
     Dates: start: 20180716
  4. CASSIA SENNA [Concomitant]
     Active Substance: HERBALS\SENNOSIDES
     Dosage: NIGHT
     Dates: start: 20180713
  5. FERROUS SULFATE. [Concomitant]
     Active Substance: FERROUS SULFATE
     Dates: start: 20180713
  6. CLARITHROMYCIN. [Concomitant]
     Active Substance: CLARITHROMYCIN
     Dates: start: 20180924
  7. LANSOPRAZOLE. [Concomitant]
     Active Substance: LANSOPRAZOLE
     Dates: start: 20180713
  8. NITROFURANTOIN. [Concomitant]
     Active Substance: NITROFURANTOIN
     Dates: start: 20180809
  9. CLOMIPRAMINE [Concomitant]
     Active Substance: CLOMIPRAMINE
     Dates: start: 20180713
  10. CO-AMOXICLAV [Suspect]
     Active Substance: AMOXICILLIN\CLAVULANATE POTASSIUM
     Dosage: 250MG/125MG
     Dates: start: 20180919, end: 20180921
  11. PREGABALIN. [Concomitant]
     Active Substance: PREGABALIN
     Dates: start: 20180713
  12. TRIMETHOPRIM. [Concomitant]
     Active Substance: TRIMETHOPRIM
     Dates: start: 20180628
  13. FULTIUM-D3 [Concomitant]
     Active Substance: CHOLECALCIFEROL
     Dates: start: 20180711, end: 20181130
  14. SOLIFENACIN [Concomitant]
     Active Substance: SOLIFENACIN
     Dosage: MORNING
     Dates: start: 20180713
  15. PARACETAMOL [Concomitant]
     Active Substance: ACETAMINOPHEN
     Dosage: 1 TO 2 UP TO FOUR TIMES DAILY
     Dates: start: 20180831

REACTIONS (2)
  - Lip swelling [Recovered/Resolved]
  - Oral mucosal discolouration [Recovering/Resolving]

NARRATIVE: CASE EVENT DATE: 20180921
